FAERS Safety Report 21097836 (Version 2)
Quarter: 2022Q3

REPORT INFORMATION
  Report Type: Report from Study
  Country: US (occurrence: US)
  Receive Date: 20220719
  Receipt Date: 20220729
  Transmission Date: 20221027
  Serious: Yes (Other)
  Sender: FDA-Public Use
  Company Number: US-JNJFOC-20220718582

PATIENT
  Age: 37 Year
  Sex: Female

DRUGS (1)
  1. PONESIMOD [Suspect]
     Active Substance: PONESIMOD
     Indication: Multiple sclerosis
     Dosage: TITRATION PACK
     Route: 065
     Dates: start: 20220630

REACTIONS (3)
  - Dizziness [Not Recovered/Not Resolved]
  - Palpitations [Not Recovered/Not Resolved]
  - Fatigue [Not Recovered/Not Resolved]

NARRATIVE: CASE EVENT DATE: 20220630
